FAERS Safety Report 14208797 (Version 4)
Quarter: 2018Q1

REPORT INFORMATION
  Report Type: Spontaneous
  Country: US (occurrence: US)
  Receive Date: 20171121
  Receipt Date: 20180323
  Transmission Date: 20180508
  Serious: Yes (Other)
  Sender: FDA-Public Use
  Company Number: US-JNJFOC-20171029205

PATIENT
  Age: 79 Year
  Sex: Female
  Weight: 55.79 kg

DRUGS (5)
  1. XARELTO [Suspect]
     Active Substance: RIVAROXABAN
     Indication: CEREBROVASCULAR ACCIDENT PROPHYLAXIS
     Route: 048
     Dates: start: 2015, end: 20150410
  2. BUMETANIDE. [Concomitant]
     Active Substance: BUMETANIDE
     Indication: FLUID RETENTION
     Route: 065
  3. ASPIRIN. [Suspect]
     Active Substance: ASPIRIN
     Indication: ATRIAL FIBRILLATION
     Dosage: EVERY NOW AND THEN
     Route: 048
     Dates: start: 2016
  4. METOPROLOL. [Concomitant]
     Active Substance: METOPROLOL
     Indication: HYPERTENSION
     Dosage: EVERY NOW AND THEN
     Route: 048
     Dates: start: 20160706
  5. XARELTO [Suspect]
     Active Substance: RIVAROXABAN
     Indication: ATRIAL FIBRILLATION
     Route: 048
     Dates: start: 2015, end: 20150410

REACTIONS (8)
  - Scar [Recovering/Resolving]
  - Nail bed bleeding [Recovering/Resolving]
  - Rash [Recovering/Resolving]
  - Eye irritation [Not Recovered/Not Resolved]
  - Formication [Recovering/Resolving]
  - Haemorrhagic diathesis [Recovering/Resolving]
  - Treatment noncompliance [Unknown]
  - Chills [Recovering/Resolving]

NARRATIVE: CASE EVENT DATE: 201504
